FAERS Safety Report 4674124-8 (Version None)
Quarter: 2005Q2

REPORT INFORMATION
  Report Type: 
  Country: None (occurrence: None)
  Receive Date: 20050524
  Receipt Date: 20050509
  Transmission Date: 20051028
  Serious: Yes (Life-Threatening, Hospitalization)
  Sender: FDA-Public Use
  Company Number: 213364

PATIENT
  Age: 64 Year
  Sex: Male
  Weight: 63.5 kg

DRUGS (16)
  1. RITUXAN [Suspect]
     Indication: WALDENSTROM'S MACROGLOBULINAEMIA
     Dosage: 680 MG, 1/WEEK, INTRAVENOUS
     Route: 042
     Dates: end: 20041020
  2. GLUCOPHAGE [Concomitant]
  3. SERZONE [Concomitant]
  4. NEXIUM [Concomitant]
  5. BEXTRA [Concomitant]
  6. UROXATRAL [Concomitant]
  7. FERREX (POLYSACCHARIDE-IRON COMPLEX) [Concomitant]
  8. EFFEXOR [Concomitant]
  9. PROCRIT (EPOETIN ALFA) [Concomitant]
  10. SELENIUM (SELENIUM) [Concomitant]
  11. FISH OIL (FISH OIL) [Concomitant]
  12. VITAMIN E [Concomitant]
  13. COLACE (DOCUSATE SODIUM) [Concomitant]
  14. XANAX [Concomitant]
  15. ULTRAM [Concomitant]
  16. CALCITRIOL [Concomitant]

REACTIONS (21)
  - ACTIVATED PARTIAL THROMBOPLASTIN TIME PROLONGED [None]
  - AORTIC ATHEROSCLEROSIS [None]
  - ATELECTASIS [None]
  - BLOOD PRESSURE DECREASED [None]
  - BLOOD UREA INCREASED [None]
  - BOWEL SOUNDS ABNORMAL [None]
  - COAGULOPATHY [None]
  - HAEMOGLOBIN DECREASED [None]
  - HEART RATE INCREASED [None]
  - HEPATIC FAILURE [None]
  - HYPERHIDROSIS [None]
  - INFUSION RELATED REACTION [None]
  - INTERNATIONAL NORMALISED RATIO INCREASED [None]
  - LUNG INFILTRATION [None]
  - OEDEMA PERIPHERAL [None]
  - PERICARDIAL EFFUSION [None]
  - PLATELET COUNT DECREASED [None]
  - PLEURAL EFFUSION [None]
  - PROTHROMBIN TIME PROLONGED [None]
  - SKIN WARM [None]
  - WHITE BLOOD CELL COUNT DECREASED [None]
